FAERS Safety Report 9626785 (Version 2)
Quarter: 2013Q4

REPORT INFORMATION
  Report Type: Spontaneous
  Country: DK (occurrence: DK)
  Receive Date: 20131016
  Receipt Date: 20131021
  Transmission Date: 20140711
  Serious: Yes (Death, Life-Threatening, Hospitalization)
  Sender: FDA-Public Use
  Company Number: DK-GLAXOSMITHKLINE-B0930913A

PATIENT
  Age: 64 Year
  Sex: Female

DRUGS (1)
  1. MELPHALAN [Suspect]
     Indication: GLOMERULOSCLEROSIS
     Dosage: 200MGM2 PER DAY
     Route: 065
     Dates: start: 20110914

REACTIONS (7)
  - Cardiac arrest [Fatal]
  - Septic shock [Fatal]
  - Sepsis [Unknown]
  - Renal impairment [Unknown]
  - Dialysis [Unknown]
  - Pyrexia [Unknown]
  - Aphasia [Unknown]
